FAERS Safety Report 9814743 (Version 1)
Quarter: 2014Q1

REPORT INFORMATION
  Report Type: Spontaneous
  Country: US (occurrence: US)
  Receive Date: 20140113
  Receipt Date: 20140113
  Transmission Date: 20141002
  Serious: No
  Sender: FDA-Public Use
  Company Number: US-SANOFI-AVENTIS-2013SA057319

PATIENT
  Sex: 0

DRUGS (2)
  1. TAXOTERE [Suspect]
     Route: 041
  2. TAXOTERE [Suspect]
     Dosage: DOES : 0.3 MG/ML IN NORMAL SALINE.
     Route: 041

REACTIONS (5)
  - Injection site reaction [Unknown]
  - Erythema [Unknown]
  - Burning sensation [Unknown]
  - Skin hyperpigmentation [Unknown]
  - Dry skin [Unknown]
